FAERS Safety Report 11319577 (Version 1)
Quarter: 2015Q3

REPORT INFORMATION
  Report Type: Spontaneous
  Country: US (occurrence: None)
  Receive Date: 20150728
  Receipt Date: 20150728
  Transmission Date: 20151125
  Serious: Yes (Other)
  Sender: FDA-Public Use
  Company Number: None

PATIENT
  Age: 48 Year
  Sex: Female
  Weight: 67.59 kg

DRUGS (1)
  1. ABILIFY [Suspect]
     Active Substance: ARIPIPRAZOLE
     Indication: BIPOLAR DISORDER
     Dosage: 20MG 1/2 DAILY ORAL
     Route: 048
     Dates: start: 20150606

REACTIONS (4)
  - Alcohol poisoning [None]
  - Palpitations [None]
  - Dizziness [None]
  - Decreased activity [None]

NARRATIVE: CASE EVENT DATE: 20150606
